FAERS Safety Report 8170365-6 (Version None)
Quarter: 2012Q1

REPORT INFORMATION
  Report Type: 
  Country: None (occurrence: None)
  Receive Date: 20120104
  Receipt Date: 20111117
  Transmission Date: 20120608
  Serious: No
  Sender: FDA-Public Use
  Company Number: 2011HGS-002832

PATIENT
  Age: 64 Year
  Sex: Female
  Weight: 72.5755 kg

DRUGS (14)
  1. VITAMIN (VITAMINS) (NULL) [Concomitant]
  2. FORTEO (TERIPARATIDE) (TERIPARATIDE) [Concomitant]
  3. PREDNISONE [Concomitant]
  4. PLAQUENIL (HYDROXYCHLOROQUINE SULFATE) (HYDROXYCHLOROQUINE SULFATE) [Concomitant]
  5. HYDROCODONE (HYDROCODONE) (HYDROCODONE) [Concomitant]
  6. IMURAN [Concomitant]
  7. BYSTOLIC (NEBIVOLOL) (NEBIVOLOL) [Concomitant]
  8. LIDODERM (LIDOCAINE) (LIDOCAINE) [Concomitant]
  9. OMEGA-3-ACID ETHYL ESTERS (LOVAZA) [Concomitant]
  10. VITAMIN B (VITAMIN B) (NULL) [Concomitant]
  11. BENLYSTA [Suspect]
     Indication: SYSTEMIC LUPUS ERYTHEMATOSUS
     Dosage: 10 MG/KG, 1 IN 28 D, INTRAVENOUS DRIP
     Route: 041
     Dates: start: 20110725
  12. LYRICA [Concomitant]
  13. CRESTOR [Concomitant]
  14. PAXIL [Concomitant]

REACTIONS (13)
  - SINUSITIS [None]
  - ARTHRALGIA [None]
  - SYSTEMIC LUPUS ERYTHEMATOSUS [None]
  - SKIN EXFOLIATION [None]
  - NASAL CONGESTION [None]
  - MYALGIA [None]
  - CONDITION AGGRAVATED [None]
  - SWOLLEN TONGUE [None]
  - DIARRHOEA [None]
  - NASAL ULCER [None]
  - FATIGUE [None]
  - RHINORRHOEA [None]
  - MOUTH ULCERATION [None]
